FAERS Safety Report 19885101 (Version 3)
Quarter: 2021Q4

REPORT INFORMATION
  Report Type: Report from Study
  Country: ES (occurrence: None)
  Receive Date: 20210927
  Receipt Date: 20211221
  Transmission Date: 20220303
  Serious: Yes (Other)
  Sender: FDA-Public Use
  Company Number: ES-ROCHE-2919898

PATIENT

DRUGS (11)
  1. TOCILIZUMAB [Suspect]
     Active Substance: TOCILIZUMAB
     Indication: COVID-19 pneumonia
     Dosage: 8 MG/KG IN PATIENTS WEIGHING  30 KG OR 12 MG/KG IN PATIENTS WEIGHING 30 KG AS A 60-MINUTE, IV INFUSI
     Route: 042
     Dates: start: 20200401
  2. TOCILIZUMAB [Suspect]
     Active Substance: TOCILIZUMAB
     Indication: COVID-19 pneumonia
     Route: 042
     Dates: start: 20200418
  3. HYDROXYCHLOROQUINE [Concomitant]
     Active Substance: HYDROXYCHLOROQUINE
     Indication: COVID-19
     Dates: start: 20200418, end: 20200428
  4. AZITHROMYCIN [Concomitant]
     Active Substance: AZITHROMYCIN
     Indication: COVID-19
     Dates: start: 20200418, end: 20200422
  5. LOPINAVIR\RITONAVIR [Concomitant]
     Active Substance: LOPINAVIR\RITONAVIR
     Indication: COVID-19
     Dates: start: 20200418, end: 20200430
  6. METHYLPREDNISOLONE [Concomitant]
     Active Substance: METHYLPREDNISOLONE
     Indication: COVID-19
     Dates: start: 20200418, end: 20200420
  7. SULFAMETHOXAZOLE\TRIMETHOPRIM [Concomitant]
     Active Substance: SULFAMETHOXAZOLE\TRIMETHOPRIM
     Indication: COVID-19
     Dates: start: 20200424, end: 20200429
  8. MEROPENEM [Concomitant]
     Active Substance: MEROPENEM
     Indication: Infection
     Dates: start: 20200404, end: 20200507
  9. LINEZOLID [Concomitant]
     Active Substance: LINEZOLID
     Indication: Infection
     Dates: start: 20200404, end: 20200507
  10. FLUCONAZOLE [Concomitant]
     Active Substance: FLUCONAZOLE
     Indication: Infection
     Dates: start: 20200428, end: 20200507
  11. PIPERACILLIN SODIUM\TAZOBACTAM SODIUM [Concomitant]
     Active Substance: PIPERACILLIN SODIUM\TAZOBACTAM SODIUM
     Indication: Infection
     Dates: start: 20200504, end: 20200507

REACTIONS (1)
  - Acute respiratory failure [Recovered/Resolved with Sequelae]

NARRATIVE: CASE EVENT DATE: 20200418
